FAERS Safety Report 24296871 (Version 1)
Quarter: 2024Q3

REPORT INFORMATION
  Report Type: Report from Study
  Country: US (occurrence: US)
  Receive Date: 20240909
  Receipt Date: 20240909
  Transmission Date: 20241017
  Serious: Yes (Other)
  Sender: UCB
  Company Number: US-UCBSA-2024045242

PATIENT

DRUGS (5)
  1. MIDAZOLAM [Suspect]
     Active Substance: MIDAZOLAM
     Indication: Sedative therapy
     Dosage: 0.51 MG/KG (1.8 MG)
  2. MIDAZOLAM [Suspect]
     Active Substance: MIDAZOLAM
     Indication: Fracture reduction
  3. MIDAZOLAM [Suspect]
     Active Substance: MIDAZOLAM
     Indication: Off label use
  4. KETAMINE [Suspect]
     Active Substance: KETAMINE
     Indication: Sedative therapy
     Dosage: 1.448 MG/KG
  5. KETAMINE [Suspect]
     Active Substance: KETAMINE
     Indication: Fracture reduction

REACTIONS (4)
  - Hypoxia [Recovered/Resolved]
  - End-tidal CO2 increased [Unknown]
  - Adverse event [Unknown]
  - Off label use [Unknown]
